FAERS Safety Report 20631774 (Version 2)
Quarter: 2024Q4

REPORT INFORMATION
  Report Type: Report from Study
  Country: DE (occurrence: DE)
  Receive Date: 20220324
  Receipt Date: 20241007
  Transmission Date: 20250114
  Serious: Yes (Death, Hospitalization, Other)
  Sender: AMGEN
  Company Number: DE-AMGEN-DEUNI2022049620

PATIENT
  Sex: Female

DRUGS (21)
  1. ETANERCEPT [Suspect]
     Active Substance: ETANERCEPT
     Indication: Rheumatoid arthritis
     Dosage: 50 MILLIGRAM
     Route: 065
     Dates: start: 201012
  2. TOCILIZUMAB [Suspect]
     Active Substance: TOCILIZUMAB
     Indication: Rheumatoid arthritis
     Dosage: 600 MG
     Route: 065
     Dates: start: 201006, end: 201011
  3. LEFLUNOMIDE [Suspect]
     Active Substance: LEFLUNOMIDE
     Indication: Rheumatoid arthritis
     Dosage: 20 MG
     Route: 065
     Dates: start: 2010
  4. HUMIRA [Suspect]
     Active Substance: ADALIMUMAB
     Indication: Rheumatoid arthritis
     Dosage: 40 MG
     Route: 065
     Dates: start: 201105, end: 201110
  5. RITUXIMAB [Suspect]
     Active Substance: RITUXIMAB
     Indication: Rheumatoid arthritis
     Dosage: 1000 MG (VISIT DATE: T5 12/DEC/2011 (RITUXIMAB DATE: /OCT/2011); T6 04/JUN/2012 (RITUXIMAB DATE: /AP
     Route: 065
     Dates: start: 20111011, end: 201808
  6. TOCILIZUMAB [Suspect]
     Active Substance: TOCILIZUMAB
     Indication: Rheumatoid arthritis
     Dosage: 600 MILLIGRAM MOST RECENT DOSE RECEIVED ON /NOV/2010
     Route: 065
     Dates: start: 201006
  7. TOCILIZUMAB [Suspect]
     Active Substance: TOCILIZUMAB
     Dosage: 600 MILLIGRAM MOST RECENT DOSE RECEIVED ON /NOV/2010
     Route: 065
     Dates: start: 201011
  8. RITUXIMAB [Suspect]
     Active Substance: RITUXIMAB
     Indication: Rheumatoid arthritis
     Dosage: T17 (RIXATHON) 20/NOV/2017
     Route: 065
     Dates: start: 20171120
  9. MABTHERA [Suspect]
     Active Substance: RITUXIMAB
     Indication: Rheumatoid arthritis
     Dosage: 1000 MILLIGRAM, (VISIT DATE: T5 12/DEC/2011 (RITUXIMAB DATE: /OCT/2011); T6 04/JUN/2012 (RITUXIMAB D
     Route: 065
     Dates: start: 20111011
  10. MABTHERA [Suspect]
     Active Substance: RITUXIMAB
     Dosage: 1000 MILLIGRAM, T5 12/DEC/2011
     Route: 065
     Dates: start: 201110
  11. MABTHERA [Suspect]
     Active Substance: RITUXIMAB
     Dosage: 1000 MILLIGRAM, T11 17/NOV/2014
     Route: 065
     Dates: start: 201409
  12. MABTHERA [Suspect]
     Active Substance: RITUXIMAB
     Dosage: 1000 MILLIGRAM, T9 11/NOV/2013
     Route: 065
     Dates: start: 201307
  13. MABTHERA [Suspect]
     Active Substance: RITUXIMAB
     Dosage: 1000 MILLIGRAM, T6 04/JUN/2012
     Route: 065
     Dates: start: 201204
  14. MABTHERA [Suspect]
     Active Substance: RITUXIMAB
     Dosage: 1000 MILLIGRAM, T14 02/MAY/2016
     Route: 065
     Dates: start: 20160502
  15. MABTHERA [Suspect]
     Active Substance: RITUXIMAB
     Dosage: 1000 MILLIGRAM, T15 15/NOV/2016
     Route: 065
     Dates: start: 20161115
  16. MABTHERA [Suspect]
     Active Substance: RITUXIMAB
     Dosage: 1000 MILLIGRAM, T16 23/MAY/2017
     Route: 065
     Dates: start: 20170523
  17. MABTHERA [Suspect]
     Active Substance: RITUXIMAB
     Dosage: 1000 MILLIGRAM, T12 12/MAY/2015
     Route: 065
     Dates: start: 20150512
  18. MABTHERA [Suspect]
     Active Substance: RITUXIMAB
     Dosage: 1000 MILLIGRAM, T12 09/NOV/2015
     Route: 065
     Dates: start: 20151109
  19. MABTHERA [Suspect]
     Active Substance: RITUXIMAB
     Dosage: 1000 MILLIGRAM, T7 19/NOV/2012
     Route: 065
     Dates: start: 20121119
  20. TRUXIMA [Suspect]
     Active Substance: RITUXIMAB-ABBS
     Indication: Rheumatoid arthritis
     Dosage: T19 (TRUXIMA) 03/DEC/2018 (TRUXIMA DATE: /AUG/2018) / MOST RECENT DOSE RECIVED ON /AUG/2018
     Route: 065
     Dates: start: 201808
  21. TRUXIMA [Suspect]
     Active Substance: RITUXIMAB-ABBS
     Dosage: T19 (TRUXIMA) 03/DEC/2018 (TRUXIMA DATE: /AUG/2018) / MOST RECENT DOSE RECIVED ON /AUG/2018
     Route: 065
     Dates: start: 20181203

REACTIONS (3)
  - Osteoarthritis [Fatal]
  - Diverticular perforation [Fatal]
  - Peritonitis [Fatal]
